FAERS Safety Report 21043370 (Version 2)
Quarter: 2022Q3

REPORT INFORMATION
  Report Type: Spontaneous
  Country: US (occurrence: US)
  Receive Date: 20220705
  Receipt Date: 20220712
  Transmission Date: 20221027
  Serious: Yes (Other)
  Sender: FDA-Public Use
  Company Number: US-PFIZER INC-202200828173

PATIENT
  Age: 26 Year
  Sex: Male
  Weight: 72.562 kg

DRUGS (2)
  1. COLESTID [Suspect]
     Active Substance: COLESTIPOL HYDROCHLORIDE
     Indication: Crohn^s disease
     Dosage: 1 G, 3-4 TIMES A DAY
     Dates: start: 1995
  2. COLESTID [Suspect]
     Active Substance: COLESTIPOL HYDROCHLORIDE
     Indication: Biliary tract disorder

REACTIONS (2)
  - Bone marrow disorder [Unknown]
  - Off label use [Unknown]

NARRATIVE: CASE EVENT DATE: 19950101
